FAERS Safety Report 23226729 (Version 1)
Quarter: 2023Q4

REPORT INFORMATION
  Report Type: Report from Study
  Country: JP (occurrence: JP)
  Receive Date: 20231124
  Receipt Date: 20231124
  Transmission Date: 20240109
  Serious: Yes (Other)
  Sender: FDA-Public Use
  Company Number: JP-SUN PHARMACEUTICAL INDUSTRIES LTD-2023RR-419724

PATIENT
  Age: 74 Year
  Sex: Male
  Weight: 50 kg

DRUGS (3)
  1. OXALIPLATIN [Suspect]
     Active Substance: OXALIPLATIN
     Indication: Colon cancer
     Dosage: UNK
     Route: 065
     Dates: start: 201909
  2. LEUCOVORIN CALCIUM [Suspect]
     Active Substance: LEUCOVORIN CALCIUM
     Indication: Colon cancer
     Dosage: UNK
     Route: 065
     Dates: start: 201909
  3. FLUOROURACIL [Suspect]
     Active Substance: FLUOROURACIL
     Indication: Colon cancer
     Dosage: 1600-1200 MG/M^2
     Route: 065
     Dates: start: 201909, end: 202010

REACTIONS (3)
  - Neuropathy peripheral [Unknown]
  - Diarrhoea [Unknown]
  - Disease progression [Unknown]
